FAERS Safety Report 7110921-7 (Version None)
Quarter: 2010Q4

REPORT INFORMATION
  Report Type: 
  Country: None (occurrence: None)
  Receive Date: 20101118
  Receipt Date: 20101013
  Transmission Date: 20110411
  Serious: Yes (Hospitalization)
  Sender: FDA-Public Use
  Company Number: GB-AMGEN-GBRCT2010000056

PATIENT

DRUGS (7)
  1. ENBREL [Suspect]
     Indication: RHEUMATOID ARTHRITIS
     Route: 058
     Dates: start: 20090915, end: 20091028
  2. ACTONEL [Concomitant]
     Dosage: UNKNOWN
  3. GOSERELIN [Concomitant]
     Dosage: UNKNOWN
  4. CALCIUM CARBONATE [Concomitant]
     Dosage: UNKNOWN
  5. CANDESARTAN CILEXETIL [Concomitant]
     Dosage: UNKNOWN
  6. PREDNISOLONE [Concomitant]
     Dosage: UNKNOWN
  7. AMLODIPINE [Concomitant]
     Dosage: UNKNOWN

REACTIONS (1)
  - BLADDER CANCER [None]
